FAERS Safety Report 7348365-5 (Version None)
Quarter: 2011Q1

REPORT INFORMATION
  Report Type: 
  Country: None (occurrence: None)
  Receive Date: 20110311
  Receipt Date: 20110301
  Transmission Date: 20110831
  Serious: Yes (Hospitalization)
  Sender: FDA-Public Use
  Company Number: US-CELGENEUS-163-21880-11030299

PATIENT
  Sex: Female

DRUGS (23)
  1. OFATUMUMAB [Suspect]
     Route: 065
  2. CO Q10 [Concomitant]
     Dosage: 100 MILLIGRAM
     Route: 048
  3. HYDROCODONE/ACETAMINOPHEN [Concomitant]
     Dosage: 7.5MG/500MG
     Route: 048
  4. SYNTHROID [Concomitant]
     Dosage: 75 MICROGRAM
     Route: 048
  5. NARCAN [Concomitant]
     Dosage: .04 MILLIGRAM
     Route: 051
     Dates: start: 20101221, end: 20101221
  6. FOSAMAX [Concomitant]
     Dosage: 35 MILLIGRAM
     Route: 048
  7. FLEXERIL [Concomitant]
     Dosage: 10 MILLIGRAM
     Route: 048
  8. CALCIUM [Concomitant]
     Dosage: 500 MILLIGRAM
     Route: 048
  9. PENNSAID [Concomitant]
     Indication: ANTIINFLAMMATORY THERAPY
     Dosage: 10 DROPS
     Route: 062
  10. ALBUTEROL [Concomitant]
     Indication: ANTIINFLAMMATORY THERAPY
     Dosage: 2.5MG/0.5
     Route: 055
  11. HYDROCODONE/ACETAMINOPHEN [Concomitant]
     Indication: PAIN
     Dosage: 10MG/325MG
     Route: 048
  12. SYNTHROID [Concomitant]
     Dosage: 50 MICROGRAM
     Route: 048
  13. XANAX [Concomitant]
     Indication: ANXIETY
     Dosage: .5 MILLIGRAM
     Route: 048
  14. CLOTRIMAZOLE [Concomitant]
     Dosage: 10 MILLIGRAM
     Route: 061
  15. LORTAB [Concomitant]
     Dosage: 10-325
     Route: 065
  16. PERCOCET [Concomitant]
     Dosage: 10-325
     Route: 048
  17. REMERON [Concomitant]
     Indication: DEPRESSION
     Dosage: 15 MILLIGRAM
     Route: 048
  18. REVLIMID [Suspect]
     Dosage: 5 MILLIGRAM
     Route: 048
  19. VITAMIN D [Concomitant]
     Dosage: 120MG/1000MG
     Route: 048
  20. LORTAB [Concomitant]
     Dosage: 7.5
     Route: 065
  21. POTASSIUM [Concomitant]
     Dosage: 20 MILLIEQUIVALENTS
     Route: 048
  22. VENLAFAXINE HCL [Concomitant]
     Indication: DEPRESSION
     Dosage: 50 MILLIGRAM
     Route: 048
  23. NIACIN [Concomitant]
     Dosage: 500 MILLIGRAM
     Route: 048

REACTIONS (3)
  - ATAXIA [None]
  - CONFUSIONAL STATE [None]
  - CEREBELLAR SYNDROME [None]
